FAERS Safety Report 5283454-0 (Version None)
Quarter: 2007Q2

REPORT INFORMATION
  Report Type: 
  Country: None (occurrence: None)
  Receive Date: 20070402
  Receipt Date: 20070320
  Transmission Date: 20071010
  Serious: Yes (Hospitalization, Other)
  Sender: FDA-Public Use
  Company Number: US-MERCK-0703USA04147

PATIENT
  Age: 72 Year
  Sex: Male

DRUGS (1)
  1. ZETIA [Suspect]
     Route: 048

REACTIONS (2)
  - FLANK PAIN [None]
  - PANCREATITIS [None]
